FAERS Safety Report 12708803 (Version 1)
Quarter: 2016Q3

REPORT INFORMATION
  Report Type: Spontaneous
  Country: US (occurrence: US)
  Receive Date: 20160901
  Receipt Date: 20160901
  Transmission Date: 20161109
  Serious: Yes (Other)
  Sender: FDA-Public Use
  Company Number: US-GLAXOSMITHKLINE-US2016GSK127727

PATIENT
  Sex: Female

DRUGS (3)
  1. FLOVENT HFA [Suspect]
     Active Substance: FLUTICASONE PROPIONATE
     Dosage: 220 UG, UNK
  2. FLOVENT HFA [Suspect]
     Active Substance: FLUTICASONE PROPIONATE
     Indication: ASTHMA
     Dosage: 110 UG, U
     Dates: start: 2001
  3. FLOVENT HFA [Suspect]
     Active Substance: FLUTICASONE PROPIONATE
     Dosage: 110 UG, U

REACTIONS (6)
  - Hip arthroplasty [Unknown]
  - Expired product administered [Unknown]
  - Knee arthroplasty [Unknown]
  - Cerebrovascular accident [Unknown]
  - Inability to afford medication [Unknown]
  - Intentional product use issue [Unknown]
